FAERS Safety Report 10812039 (Version 1)
Quarter: 2015Q1

REPORT INFORMATION
  Report Type: Spontaneous
  Country: US (occurrence: None)
  Receive Date: 20150213
  Receipt Date: 20150213
  Transmission Date: 20150721
  Serious: Yes (Life-Threatening)
  Sender: FDA-Public Use
  Company Number: None

PATIENT
  Age: 52 Year
  Sex: Female
  Weight: 80.1 kg

DRUGS (13)
  1. AMILORIDE/HYDROCHLOROTHIAZIDE [Concomitant]
     Active Substance: AMILORIDE HYDROCHLORIDE\HYDROCHLOROTHIAZIDE
  2. EMLA [Concomitant]
     Active Substance: LIDOCAINE\PRILOCAINE
  3. FLUOXETINE [Concomitant]
     Active Substance: FLUOXETINE\FLUOXETINE HYDROCHLORIDE
  4. ZOFRAN [Concomitant]
     Active Substance: ONDANSETRON HYDROCHLORIDE
  5. FOSAPREPITANT [Suspect]
     Active Substance: FOSAPREPITANT
     Indication: VOMITING
     Route: 042
     Dates: start: 20150212, end: 20150212
  6. BIOTENE [Concomitant]
     Active Substance: SODIUM MONOFLUOROPHOSPHATE
  7. PYRIDOXINE [Concomitant]
     Active Substance: PYRIDOXINE
  8. TRAZODONE [Concomitant]
     Active Substance: TRAZODONE HYDROCHLORIDE
  9. LORAZEPAM. [Concomitant]
     Active Substance: LORAZEPAM
  10. COMPAZINE [Concomitant]
     Active Substance: PROCHLORPERAZINE MALEATE
  11. OXYCODONE [Concomitant]
     Active Substance: OXYCODONE
  12. LOPERAMIDE [Concomitant]
     Active Substance: LOPERAMIDE
  13. OMEPRAZOLE. [Concomitant]
     Active Substance: OMEPRAZOLE

REACTIONS (5)
  - Tachycardia [None]
  - Hypertension [None]
  - Swelling face [None]
  - Chest pain [None]
  - Local swelling [None]

NARRATIVE: CASE EVENT DATE: 20150211
